FAERS Safety Report 19733863 (Version 8)
Quarter: 2022Q2

REPORT INFORMATION
  Report Type: Report from Study
  Country: US (occurrence: US)
  Receive Date: 20210824
  Receipt Date: 20220519
  Transmission Date: 20220721
  Serious: Yes (Hospitalization, Other)
  Sender: FDA-Public Use
  Company Number: US-AUROBINDO-AUR-APL-2021-035494

PATIENT
  Age: 50 Year
  Sex: Male
  Weight: 88.6 kg

DRUGS (19)
  1. BELINOSTAT [Suspect]
     Active Substance: BELINOSTAT
     Indication: Chondrosarcoma
     Dosage: 10550 UNK
     Route: 065
     Dates: start: 20200914, end: 20200918
  2. BELINOSTAT [Suspect]
     Active Substance: BELINOSTAT
     Dosage: 10550 UNK
     Route: 065
     Dates: start: 20201012
  3. BELINOSTAT [Suspect]
     Active Substance: BELINOSTAT
     Dosage: 10550 UNK
     Route: 065
     Dates: start: 20201109
  4. BELINOSTAT [Suspect]
     Active Substance: BELINOSTAT
     Dosage: 10550 UNK
     Route: 065
     Dates: start: 20201207
  5. BELINOSTAT [Suspect]
     Active Substance: BELINOSTAT
     Dosage: 10550 UNK
     Route: 065
     Dates: start: 20210104
  6. BELINOSTAT [Suspect]
     Active Substance: BELINOSTAT
     Dosage: 10550 UNK
     Route: 065
     Dates: start: 20210201
  7. BELINOSTAT [Suspect]
     Active Substance: BELINOSTAT
     Dosage: 10550 UNK
     Route: 065
     Dates: start: 20210301
  8. BELINOSTAT [Suspect]
     Active Substance: BELINOSTAT
     Dosage: 10550 UNK
     Route: 065
     Dates: start: 20210329
  9. BELINOSTAT [Suspect]
     Active Substance: BELINOSTAT
     Dosage: 10550 UNK
     Route: 065
     Dates: start: 20210426
  10. BELINOSTAT [Suspect]
     Active Substance: BELINOSTAT
     Dosage: UNK
     Route: 065
  11. GUADECITABINE [Suspect]
     Active Substance: GUADECITABINE
     Indication: Chondrosarcoma
     Dosage: 475 UNK
     Route: 065
     Dates: start: 20200914, end: 20200918
  12. GUADECITABINE [Suspect]
     Active Substance: GUADECITABINE
     Dosage: 475 UNK
     Route: 065
     Dates: start: 20201012
  13. GUADECITABINE [Suspect]
     Active Substance: GUADECITABINE
     Dosage: 475 UNK
     Route: 065
     Dates: start: 20201109
  14. GUADECITABINE [Suspect]
     Active Substance: GUADECITABINE
     Dosage: 475 UNK
     Route: 065
     Dates: start: 20201207
  15. GUADECITABINE [Suspect]
     Active Substance: GUADECITABINE
     Dosage: 475 UNK
     Route: 065
     Dates: start: 20210104
  16. GUADECITABINE [Suspect]
     Active Substance: GUADECITABINE
     Dosage: 475 UNK
     Route: 065
     Dates: start: 20210201
  17. GUADECITABINE [Suspect]
     Active Substance: GUADECITABINE
     Dosage: 475 UNK
     Route: 065
     Dates: start: 20210301
  18. GUADECITABINE [Suspect]
     Active Substance: GUADECITABINE
     Dosage: 475 UNK
     Route: 065
     Dates: start: 20210329
  19. GUADECITABINE [Suspect]
     Active Substance: GUADECITABINE
     Dosage: 475 UNK
     Route: 065
     Dates: start: 20210426

REACTIONS (14)
  - Transient ischaemic attack [Recovered/Resolved]
  - Constipation [Unknown]
  - Dyspepsia [Unknown]
  - Eczema [Unknown]
  - Embolism [Unknown]
  - Fatigue [Unknown]
  - Injection site reaction [Unknown]
  - Nausea [Unknown]
  - Neuralgia [Unknown]
  - Pneumonia [Unknown]
  - Pain [Unknown]
  - Rash maculo-papular [Unknown]
  - Rhinitis allergic [Unknown]
  - Vomiting [Unknown]

NARRATIVE: CASE EVENT DATE: 20200914
